FAERS Safety Report 4565249-6 (Version None)
Quarter: 2005Q1

REPORT INFORMATION
  Report Type: 
  Country: None (occurrence: None)
  Receive Date: 20050127
  Receipt Date: 20050127
  Transmission Date: 20050727
  Serious: Yes (Other)
  Sender: FDA-Public Use
  Company Number: None

PATIENT
  Age: 67 Year
  Sex: Female

DRUGS (3)
  1. OMEPRAZOLE [Suspect]
     Dosage: TAKE 1 CAPSULE BEFORE BREAKFAST DAILY FOR REFLUX
  2. MOBIC [Concomitant]
  3. POT CHLOR [Concomitant]

REACTIONS (1)
  - NO ADVERSE DRUG EFFECT [None]
